FAERS Safety Report 17891279 (Version 2)
Quarter: 2021Q1

REPORT INFORMATION
  Report Type: Spontaneous
  Country: US (occurrence: US)
  Receive Date: 20200612
  Receipt Date: 20210321
  Transmission Date: 20210419
  Serious: Yes (Other)
  Sender: FDA-Public Use
  Company Number: US-BIOGEN-2020BI00883275

PATIENT
  Sex: Female

DRUGS (1)
  1. TECFIDERA [Suspect]
     Active Substance: DIMETHYL FUMARATE
     Indication: MULTIPLE SCLEROSIS
     Route: 065
     Dates: start: 20170710, end: 20180101

REACTIONS (6)
  - Bladder disorder [Unknown]
  - Goitre [Unknown]
  - Arthropathy [Not Recovered/Not Resolved]
  - Temperature intolerance [Unknown]
  - Respiratory tract procedural complication [Unknown]
  - Rubber sensitivity [Not Recovered/Not Resolved]
